FAERS Safety Report 10083973 (Version 2)
Quarter: 2014Q2

REPORT INFORMATION
  Report Type: Spontaneous
  Country: BR (occurrence: BR)
  Receive Date: 20140417
  Receipt Date: 20140624
  Transmission Date: 20141212
  Serious: Yes (Hospitalization, Other)
  Sender: FDA-Public Use
  Company Number: BR-ASTRAZENECA-2014SE25283

PATIENT
  Age: 82 Year
  Sex: Male
  Weight: 72 kg

DRUGS (7)
  1. CRESTOR [Suspect]
     Indication: BLOOD CHOLESTEROL INCREASED
     Route: 048
     Dates: start: 201104
  2. BRILINTA [Suspect]
     Indication: CARDIOVASCULAR EVENT PROPHYLAXIS
     Route: 048
     Dates: start: 201309
  3. CARVEDILOL [Concomitant]
     Dosage: TWO TIMES A DAY
     Route: 048
     Dates: start: 201104
  4. HIPERTIL [Concomitant]
     Route: 048
     Dates: start: 201104
  5. ASPIRINA PREVENT [Concomitant]
     Route: 048
     Dates: start: 201104
  6. ESPRAN [Concomitant]
     Indication: NERVOUSNESS
     Route: 048
     Dates: start: 201312
  7. LOZEPREL [Concomitant]

REACTIONS (4)
  - Cholelithiasis [Recovered/Resolved]
  - Hypoacusis [Not Recovered/Not Resolved]
  - Nervousness [Recovering/Resolving]
  - Fatigue [Not Recovered/Not Resolved]
